FAERS Safety Report 23523584 (Version 3)
Quarter: 2024Q2

REPORT INFORMATION
  Report Type: Spontaneous
  Country: US (occurrence: US)
  Receive Date: 20240214
  Receipt Date: 20240426
  Transmission Date: 20240716
  Serious: Yes (Other)
  Sender: FDA-Public Use
  Company Number: US-PFIZER INC-202400038853

PATIENT
  Age: 38 Year
  Sex: Female
  Weight: 55.782 kg

DRUGS (5)
  1. PAXLOVID [Interacting]
     Active Substance: NIRMATRELVIR\RITONAVIR
     Indication: COVID-19 treatment
     Dosage: 150 MG, 2X/DAY
     Route: 048
     Dates: start: 20230910, end: 20230911
  2. BUSPAR [Interacting]
     Active Substance: BUSPIRONE HYDROCHLORIDE
     Dosage: UNK
     Dates: start: 20200302
  3. BUSPAR [Interacting]
     Active Substance: BUSPIRONE HYDROCHLORIDE
     Dosage: UNK
     Route: 048
     Dates: start: 202006
  4. INTUNIV [Interacting]
     Active Substance: GUANFACINE HYDROCHLORIDE
     Indication: Attention deficit hyperactivity disorder
     Dosage: UNK
     Dates: start: 20221031
  5. INTUNIV [Interacting]
     Active Substance: GUANFACINE HYDROCHLORIDE
     Dosage: UNK
     Route: 048
     Dates: start: 202211

REACTIONS (5)
  - Drug interaction [Unknown]
  - Bradycardia [Recovered/Resolved]
  - Heart rate decreased [Recovered/Resolved]
  - Asthenia [Recovered/Resolved]
  - Incorrect dose administered [Unknown]

NARRATIVE: CASE EVENT DATE: 20230910
